FAERS Safety Report 12312069 (Version 1)
Quarter: 2016Q2

REPORT INFORMATION
  Report Type: Report from Study
  Country: CA (occurrence: CA)
  Receive Date: 20160427
  Receipt Date: 20160427
  Transmission Date: 20160815
  Serious: Yes (Other)
  Sender: FDA-Public Use
  Company Number: CA-TAKEDA-2016TUS007307

PATIENT
  Age: 34 Year
  Sex: Female

DRUGS (8)
  1. VORTIOXETINE [Suspect]
     Active Substance: VORTIOXETINE
     Dosage: 5 MG, QD
     Route: 065
     Dates: start: 20150315, end: 20160319
  2. CLONAZEPAM. [Concomitant]
     Active Substance: CLONAZEPAM
     Dosage: 2.5 MG, QD
     Route: 048
     Dates: start: 20130327
  3. VORTIOXETINE [Suspect]
     Active Substance: VORTIOXETINE
     Dosage: 10 MG, QD
     Route: 065
     Dates: start: 20160303, end: 20160315
  4. SAPHRIS [Suspect]
     Active Substance: ASENAPINE MALEATE
     Dosage: 12.5 MG, QD
     Route: 065
     Dates: start: 20160210
  5. ALERTEC [Concomitant]
     Active Substance: MODAFINIL
     Dosage: 400 MG, UNK
     Route: 048
     Dates: start: 20140203
  6. VORTIOXETINE [Suspect]
     Active Substance: VORTIOXETINE
     Indication: MAJOR DEPRESSION
     Dosage: 20 MG, QD
     Route: 065
     Dates: start: 20151116, end: 20160303
  7. SAPHRIS [Suspect]
     Active Substance: ASENAPINE MALEATE
     Indication: BIPOLAR DISORDER
     Dosage: 15 MG, QD
     Route: 065
     Dates: start: 20151231
  8. ZOLOFT [Concomitant]
     Active Substance: SERTRALINE HYDROCHLORIDE
     Dosage: 75 MG, UNK
     Route: 048
     Dates: start: 20140425, end: 20160310

REACTIONS (3)
  - Drug effect incomplete [Unknown]
  - Serotonin syndrome [Recovered/Resolved]
  - Akathisia [Recovered/Resolved]

NARRATIVE: CASE EVENT DATE: 20160210
